FAERS Safety Report 6465875-3 (Version None)
Quarter: 2009Q4

REPORT INFORMATION
  Report Type: 
  Country: None (occurrence: None)
  Receive Date: 20091127
  Receipt Date: 20091117
  Transmission Date: 20100525
  Serious: Yes (Hospitalization)
  Sender: FDA-Public Use
  Company Number: 231436J09USA

PATIENT
  Age: 31 Year
  Sex: Female

DRUGS (7)
  1. REBIF [Suspect]
     Indication: MULTIPLE SCLEROSIS
     Dosage: 44 MCG, 3 IN 1 WEEKS, SUBCUTANEOUS
     Route: 058
     Dates: start: 20090406
  2. ALEVE (CAPLET) [Suspect]
     Indication: SLEEP DISORDER
  3. PROZAC [Concomitant]
  4. KLONOPIN [Concomitant]
  5. IBUPROFEN [Concomitant]
  6. NEURONTIN [Concomitant]
  7. LYRICA [Concomitant]

REACTIONS (12)
  - BLOOD PRESSURE INCREASED [None]
  - DEPRESSION [None]
  - DRUG DOSE OMISSION [None]
  - FEELING ABNORMAL [None]
  - FEELING JITTERY [None]
  - GASTRIC ULCER HAEMORRHAGE [None]
  - HEART RATE INCREASED [None]
  - INSOMNIA [None]
  - OESOPHAGEAL ULCER HAEMORRHAGE [None]
  - PAIN [None]
  - PAIN IN EXTREMITY [None]
  - SUICIDAL IDEATION [None]
